FAERS Safety Report 8622859-4 (Version None)
Quarter: 2012Q3

REPORT INFORMATION
  Report Type: 
  Country: None (occurrence: None)
  Receive Date: 20120827
  Receipt Date: 20120822
  Transmission Date: 20120928
  Serious: Yes (Other)
  Sender: FDA-Public Use
  Company Number: PHHY2009CA53071

PATIENT
  Sex: Female

DRUGS (2)
  1. SANDOSTATIN LAR [Suspect]
     Dosage: 30 MG, EVERY 4 WEEKS
     Route: 030
     Dates: end: 20120727
  2. SANDOSTATIN LAR [Suspect]
     Indication: CARCINOID TUMOUR
     Dosage: 30 MG, EVERY 4 WEEKS
     Route: 030
     Dates: start: 20091120, end: 20101125

REACTIONS (13)
  - FAT TISSUE INCREASED [None]
  - PAIN [None]
  - MUSCULOSKELETAL PAIN [None]
  - VIRAL INFECTION [None]
  - MALAISE [None]
  - TINNITUS [None]
  - ASTHENIA [None]
  - FATIGUE [None]
  - CYST [None]
  - UPPER EXTREMITY MASS [None]
  - NAUSEA [None]
  - MUSCLE SPASMS [None]
  - WEIGHT INCREASED [None]
